FAERS Safety Report 16870121 (Version 1)
Quarter: 2019Q3

REPORT INFORMATION
  Report Type: Spontaneous
  Country: US (occurrence: US)
  Receive Date: 20190930
  Receipt Date: 20190930
  Transmission Date: 20191005
  Serious: Yes (Hospitalization)
  Sender: FDA-Public Use
  Company Number: US-ALLERGAN-1939162US

PATIENT
  Weight: 68.03 kg

DRUGS (20)
  1. AMLODIPINE [Suspect]
     Active Substance: AMLODIPINE BESYLATE
     Indication: ESSENTIAL HYPERTENSION
     Dosage: 7.5 MG, QD
     Route: 048
  2. CALCIUM CARBONATE. [Suspect]
     Active Substance: CALCIUM CARBONATE
     Indication: OSTEOPOROSIS
  3. SYNTHROID [Suspect]
     Active Substance: LEVOTHYROXINE SODIUM
     Indication: HYPOTHYROIDISM
     Dosage: 100 ?G, 5 DAYS/WEEK
     Route: 048
  4. CORMAX [Suspect]
     Active Substance: CLOBETASOL PROPIONATE
     Indication: PSORIASIS
     Dosage: AS NEEDED
     Route: 061
  5. ELOCAN [Suspect]
     Active Substance: MOMETASONE FUROATE
     Indication: PSORIASIS
     Route: 061
  6. MULTIVITAMIN [Suspect]
     Active Substance: VITAMINS
     Indication: PRODUCT USED FOR UNKNOWN INDICATION
     Dosage: UNK, QD
     Route: 048
  7. VITAMIN D3 [Suspect]
     Active Substance: CHOLECALCIFEROL
     Indication: OSTEOPOROSIS
  8. XALATAN [Suspect]
     Active Substance: LATANOPROST
     Indication: GLAUCOMA
     Dosage: 1 GTT, QHS
     Route: 047
  9. VITAMIN D3 [Suspect]
     Active Substance: CHOLECALCIFEROL
     Indication: OSTEOPENIA
     Dosage: 1000 UNITS, QD
     Route: 048
  10. COMBIGAN [Suspect]
     Active Substance: BRIMONIDINE TARTRATE\TIMOLOL MALEATE
     Indication: GLAUCOMA
     Dosage: 1 GTT, BID
     Route: 047
  11. METHOTREXATE. [Suspect]
     Active Substance: METHOTREXATE
     Indication: PSORIATIC ARTHROPATHY
     Dosage: 2.5 MG, 20 MG Q WEEK
     Route: 048
  12. NEXIUM [Suspect]
     Active Substance: ESOMEPRAZOLE MAGNESIUM
     Indication: GASTROOESOPHAGEAL REFLUX DISEASE
     Dosage: 40 MG, QD
     Route: 048
  13. PREDNISONE. [Suspect]
     Active Substance: PREDNISONE
     Indication: PSORIATIC ARTHROPATHY
     Dosage: 5 MG, QD
     Route: 048
     Dates: start: 20190517
  14. HYDROCODONE BITARTRATE;ACETAMINOPHEN UNK [Suspect]
     Active Substance: ACETAMINOPHEN\HYDROCODONE BITARTRATE
     Indication: ARTHRALGIA
     Dosage: UNK, Q4HR, AS NEEDED
     Route: 048
  15. HUMIRA [Suspect]
     Active Substance: ADALIMUMAB
     Indication: PSORIATIC ARTHROPATHY
     Dosage: 40 MG/ 0.8 ML ONCE PER WEEK
     Route: 065
  16. PREDNISONE. [Suspect]
     Active Substance: PREDNISONE
     Dosage: 6 MG, QD
     Route: 048
     Dates: end: 20180517
  17. PRED FORTE [Suspect]
     Active Substance: PREDNISOLONE ACETATE
     Indication: UVEITIS
     Dosage: 1 GTT, QOD
     Route: 047
  18. CALCIUM CARBONATE. [Suspect]
     Active Substance: CALCIUM CARBONATE
     Indication: OSTEOPENIA
     Dosage: 600 MG, QD
     Route: 048
  19. DOCUSATE [Suspect]
     Active Substance: DOCUSATE
     Indication: CONSTIPATION
     Dosage: 100 MG, QD
     Route: 048
  20. FOLIC ACID. [Suspect]
     Active Substance: FOLIC ACID
     Indication: PROPHYLAXIS
     Dosage: 1 G, BID
     Route: 048

REACTIONS (1)
  - Lower limb fracture [Unknown]

NARRATIVE: CASE EVENT DATE: 20190413
